FAERS Safety Report 10868611 (Version 1)
Quarter: 2015Q1

REPORT INFORMATION
  Report Type: Spontaneous
  Country: FR (occurrence: FR)
  Receive Date: 20150225
  Receipt Date: 20150225
  Transmission Date: 20150721
  Serious: Yes (Death)
  Sender: FDA-Public Use
  Company Number: FR-PFIZER INC-2015068679

PATIENT
  Age: 59 Year
  Sex: Male

DRUGS (22)
  1. VFEND [Suspect]
     Active Substance: VORICONAZOLE
     Indication: ASPERGILLUS INFECTION
     Dosage: 200 MG, 3X/DAY
     Route: 048
     Dates: start: 20141022, end: 20141022
  2. ZYMAD [Concomitant]
     Active Substance: CHOLECALCIFEROL
     Dosage: UNK
     Dates: start: 201409
  3. PRIMPERAN [Suspect]
     Active Substance: METOCLOPRAMIDE HYDROCHLORIDE
     Indication: NAUSEA
     Dosage: 10 MG, 3X/DAY
     Route: 042
     Dates: start: 20141007, end: 20141025
  4. PARACETAMOL [Concomitant]
     Active Substance: ACETAMINOPHEN
     Dosage: UNK, AS NEEDED
     Dates: start: 201409
  5. DIFFU-K [Concomitant]
     Active Substance: POTASSIUM CHLORIDE
     Dosage: UNK
     Dates: start: 201409
  6. ADVAGRAF [Suspect]
     Active Substance: TACROLIMUS
     Dosage: UNK
     Route: 048
     Dates: start: 201406
  7. CORTANCYL [Concomitant]
     Active Substance: PREDNISONE
     Dosage: 15 MG, DAILY
     Dates: start: 201409
  8. SEROPLEX [Concomitant]
     Active Substance: ESCITALOPRAM OXALATE
     Dosage: 20 MG, DAILY
     Dates: start: 201409
  9. IMOVANE [Concomitant]
     Active Substance: ZOPICLONE
     Dosage: 7.5 MG, DAILY
     Dates: start: 201409
  10. FOSCAVIR [Concomitant]
     Active Substance: FOSCARNET SODIUM
     Indication: CYTOMEGALOVIRUS INFECTION
     Dosage: 6 G, 2X/DAY
     Dates: start: 20141003, end: 20141013
  11. ATARAX [Concomitant]
     Active Substance: HYDROXYZINE\HYDROXYZINE HYDROCHLORIDE
     Dosage: 25 MG, 3X/DAY
     Dates: start: 20141007
  12. VFEND [Suspect]
     Active Substance: VORICONAZOLE
     Dosage: 400 MG, DAILY
     Route: 048
     Dates: start: 20141023
  13. ADVAGRAF [Suspect]
     Active Substance: TACROLIMUS
     Dosage: 0.5 MG, DAILY
     Route: 048
     Dates: start: 201409, end: 20141027
  14. CERTICAN [Suspect]
     Active Substance: EVEROLIMUS
     Dosage: 1.5 MG, DAILY
     Dates: start: 20141021, end: 20141027
  15. LEDERFOLINE [Concomitant]
     Active Substance: LEUCOVORIN CALCIUM
     Dosage: 25 MG, 2X/WEEK
     Dates: start: 201409
  16. NOXAFIL [Concomitant]
     Active Substance: POSACONAZOLE
     Dosage: 600 MG, DAILY
     Dates: start: 201409, end: 20141010
  17. FOSCAVIR [Concomitant]
     Active Substance: FOSCARNET SODIUM
     Dosage: 4 G, 2X/DAY
     Dates: start: 20141014, end: 20141019
  18. FANSIDAR [Concomitant]
     Active Substance: PYRIMETHAMINE\SULFADOXINE
     Dosage: UNK, 2X/WEEK
     Dates: start: 201409, end: 20141025
  19. INEXIUM /01479302/ [Concomitant]
     Active Substance: ESOMEPRAZOLE MAGNESIUM
     Dosage: 40 MG, DAILY
     Dates: start: 201409
  20. LASILIX [Concomitant]
     Active Substance: FUROSEMIDE
     Dosage: 40 MG, DAILY
     Dates: start: 201409
  21. FOSCAVIR [Concomitant]
     Active Substance: FOSCARNET SODIUM
     Dosage: 4 G, DAILY
     Dates: start: 20141020
  22. ONDANSETRON [Concomitant]
     Active Substance: ONDANSETRON
     Dosage: 4 MG, 3X/DAY
     Route: 042
     Dates: start: 20141007

REACTIONS (2)
  - Confusional state [Fatal]
  - Hallucination [Fatal]

NARRATIVE: CASE EVENT DATE: 20141023
